FAERS Safety Report 6402906-0 (Version None)
Quarter: 2009Q4

REPORT INFORMATION
  Report Type: 
  Country: None (occurrence: None)
  Receive Date: 20091014
  Receipt Date: 20091014
  Transmission Date: 20100525
  Serious: Yes (Other)
  Sender: FDA-Public Use
  Company Number: None

PATIENT
  Age: 15 Year
  Sex: Male
  Weight: 81.8 kg

DRUGS (1)
  1. AMPHETAMINE ER 30MG [Suspect]
     Indication: ATTENTION DEFICIT/HYPERACTIVITY DISORDER
     Dosage: 30MG 1X/DAY ORAL 9/27
     Route: 048
     Dates: start: 20090927

REACTIONS (3)
  - DYSPNOEA [None]
  - PALPITATIONS [None]
  - PRODUCT SUBSTITUTION ISSUE [None]
